FAERS Safety Report 24314197 (Version 1)
Quarter: 2024Q3

REPORT INFORMATION
  Report Type: Spontaneous
  Country: IT (occurrence: IT)
  Receive Date: 20240912
  Receipt Date: 20240912
  Transmission Date: 20241016
  Serious: Yes (Hospitalization, Other)
  Sender: SANDOZ
  Company Number: IT-NOVPHSZ-PHHY2018IT043214

PATIENT
  Age: 58 Year
  Sex: Male

DRUGS (15)
  1. AMIODARONE HYDROCHLORIDE [Suspect]
     Active Substance: AMIODARONE HYDROCHLORIDE
     Indication: Product used for unknown indication
     Dosage: 20 DOSAGE FORM, TOTAL
     Route: 048
     Dates: start: 20180118, end: 20180118
  2. ATORVASTATIN CALCIUM [Suspect]
     Active Substance: ATORVASTATIN CALCIUM
     Indication: Product used for unknown indication
     Dosage: 50 DF, TOTAL
     Route: 048
     Dates: start: 20180118, end: 20180118
  3. AMIODARONE [Suspect]
     Active Substance: AMIODARONE
     Indication: Product used for unknown indication
     Dosage: 20 DF, TOTAL
     Route: 048
     Dates: start: 20180118, end: 20180118
  4. AMLODIPINE [Suspect]
     Active Substance: AMLODIPINE BESYLATE
     Indication: Product used for unknown indication
     Dosage: 14 DF, TOTAL
     Route: 048
     Dates: start: 20180118, end: 20180118
  5. AMLODIPINE BESYLATE [Suspect]
     Active Substance: AMLODIPINE BESYLATE
     Indication: Product used for unknown indication
     Dosage: 14 DOSAGE FORM, TOTAL
     Route: 048
     Dates: start: 20180118, end: 20180118
  6. BISOPROLOL FUMARATE [Suspect]
     Active Substance: BISOPROLOL FUMARATE
     Indication: Product used for unknown indication
     Dosage: 28 DF, TOTAL
     Route: 048
     Dates: start: 20180118, end: 20180118
  7. BISOPROLOL FUMARATE [Suspect]
     Active Substance: BISOPROLOL FUMARATE
     Indication: Product used for unknown indication
     Dosage: 28 DOSAGE FORM, TOTAL
     Route: 048
     Dates: start: 20180118, end: 20180118
  8. ELIQUIS [Suspect]
     Active Substance: APIXABAN
     Indication: Product used for unknown indication
     Dosage: 60 DF, TOTAL
     Route: 048
     Dates: start: 20180118, end: 20180118
  9. HYDROCHLOROTHIAZIDE [Suspect]
     Active Substance: HYDROCHLOROTHIAZIDE
     Indication: Product used for unknown indication
     Dosage: 64 DF,TOTAL
     Route: 048
     Dates: start: 20180118, end: 20180118
  10. HYDROCHLOROTHIAZIDE [Suspect]
     Active Substance: HYDROCHLOROTHIAZIDE
     Indication: Product used for unknown indication
     Dosage: 64 DF, TOTAL
     Route: 048
     Dates: start: 20180118, end: 20180118
  11. HYDROCHLOROTHIAZIDE\OLMESARTAN MEDOXOMIL [Suspect]
     Active Substance: HYDROCHLOROTHIAZIDE\OLMESARTAN MEDOXOMIL
     Indication: Product used for unknown indication
     Dosage: 64 DF, TOTAL
     Route: 048
     Dates: start: 20180118, end: 20180118
  12. PALEXIA [Suspect]
     Active Substance: TAPENTADOL HYDROCHLORIDE
     Indication: Product used for unknown indication
     Dosage: 80 DF, TOTAL
     Route: 048
     Dates: start: 20080118, end: 20180118
  13. TRIAZOLAM [Suspect]
     Active Substance: TRIAZOLAM
     Indication: Product used for unknown indication
     Dosage: 20 DF, TOTAL
     Route: 048
     Dates: start: 20180118, end: 20180118
  14. TAMSULOSIN HYDROCHLORIDE [Concomitant]
     Active Substance: TAMSULOSIN HYDROCHLORIDE
     Indication: Benign prostatic hyperplasia
     Dosage: UNK
     Route: 048
  15. TAMSULOSIN HYDROCHLORIDE [Concomitant]
     Active Substance: TAMSULOSIN HYDROCHLORIDE
     Indication: Benign prostatic hyperplasia

REACTIONS (4)
  - Urinary incontinence [Recovering/Resolving]
  - Confusional state [Recovering/Resolving]
  - Drug abuse [Recovering/Resolving]
  - Intentional overdose [Unknown]

NARRATIVE: CASE EVENT DATE: 20180118
